FAERS Safety Report 8823602 (Version 1)
Quarter: 2012Q4

REPORT INFORMATION
  Report Type: 
  Country: US (occurrence: US)
  Receive Date: 20121003
  Receipt Date: 20121003
  Transmission Date: 20130627
  Serious: Yes (Other)
  Sender: FDA-Public Use
  Company Number: CHPA2012US020448

PATIENT
  Sex: Male

DRUGS (1)
  1. TAVIST ALLERGY [Suspect]
     Indication: NASOPHARYNGITIS
     Dosage: UNK, as needed

REACTIONS (5)
  - Lyme disease [Recovered/Resolved]
  - Cataract [Recovered/Resolved]
  - Musculoskeletal stiffness [Not Recovered/Not Resolved]
  - Bone pain [Not Recovered/Not Resolved]
  - Expired drug administered [Unknown]
